FAERS Safety Report 6637879-9 (Version None)
Quarter: 2010Q1

REPORT INFORMATION
  Report Type: 
  Country: None (occurrence: None)
  Receive Date: 20100317
  Receipt Date: 20090604
  Transmission Date: 20100710
  Serious: Yes (Hospitalization, Other)
  Sender: FDA-Public Use
  Company Number: PHHY2009TW60820

PATIENT

DRUGS (1)
  1. GLEEVEC [Suspect]
     Dosage: 400

REACTIONS (4)
  - ARTHRITIS INFECTIVE [None]
  - BACTERIAL INFECTION [None]
  - HAND FRACTURE [None]
  - KNEE ARTHROPLASTY [None]
